FAERS Safety Report 18258451 (Version 1)
Quarter: 2020Q3

REPORT INFORMATION
  Report Type: Other
  Country: US (occurrence: US)
  Receive Date: 20200911
  Receipt Date: 20200911
  Transmission Date: 20201103
  Serious: No
  Sender: FDA-Public Use
  Company Number: US-LEADIANT BIOSCIENCES INC-2020STPI000041

PATIENT

DRUGS (24)
  1. BENADRYL [Concomitant]
     Active Substance: DIPHENHYDRAMINE HYDROCHLORIDE
  2. ETOPOSIDE. [Concomitant]
     Active Substance: ETOPOSIDE
  3. TRIPLE FLEX RAPID RELIEF [Concomitant]
  4. WELLBUTRIN [Concomitant]
     Active Substance: BUPROPION HYDROCHLORIDE
  5. MATULANE [Suspect]
     Active Substance: PROCARBAZINE HYDROCHLORIDE
     Indication: B-CELL LYMPHOMA
     Dosage: 50 MILLIGRAM 5 DAYS EVERY 4 WEEK CYCLE
     Route: 048
     Dates: start: 20191231
  6. OMEPRAZOLE. [Concomitant]
     Active Substance: OMEPRAZOLE
  7. SUPER B COMPL [Concomitant]
  8. ALOXI [Concomitant]
     Active Substance: PALONOSETRON HYDROCHLORIDE
  9. COQ10 COMPLEX [Concomitant]
  10. CYCLOPHOSPHAN [Concomitant]
     Active Substance: CYCLOPHOSPHAMIDE
  11. LOSARTAN POTASSIUM. [Concomitant]
     Active Substance: LOSARTAN POTASSIUM
  12. MAGNESIUM [Concomitant]
     Active Substance: MAGNESIUM
  13. METOPROLOL TARTRATE. [Concomitant]
     Active Substance: METOPROLOL TARTRATE
  14. SPIRONOLACTONE. [Concomitant]
     Active Substance: SPIRONOLACTONE
  15. ANORO ELLIPTA [Concomitant]
     Active Substance: UMECLIDINIUM BROMIDE\VILANTEROL TRIFENATATE
  16. ASPIRIN (E.C.) [Concomitant]
     Active Substance: ASPIRIN
  17. NEULASTA [Concomitant]
     Active Substance: PEGFILGRASTIM
  18. PREDNISONE. [Concomitant]
     Active Substance: PREDNISONE
  19. EMEND [Concomitant]
     Active Substance: APREPITANT
  20. MULTIPLE VITAMINS [Concomitant]
     Active Substance: VITAMINS
  21. POTASSIUM [Concomitant]
     Active Substance: POTASSIUM
  22. LASIX [Concomitant]
     Active Substance: FUROSEMIDE
  23. TESSALON [Concomitant]
     Active Substance: BENZONATATE
  24. XANAX [Concomitant]
     Active Substance: ALPRAZOLAM

REACTIONS (1)
  - Herpes zoster [Unknown]
